FAERS Safety Report 4501919-3 (Version None)
Quarter: 2004Q4

REPORT INFORMATION
  Report Type: 
  Country: None (occurrence: None)
  Receive Date: 20041116
  Receipt Date: 20041105
  Transmission Date: 20050328
  Serious: Yes (Hospitalization, Other)
  Sender: FDA-Public Use
  Company Number: GB-BRISTOL-MYERS SQUIBB COMPANY-12756912

PATIENT
  Age: 74 Year
  Sex: Female

DRUGS (1)
  1. CARBOPLATIN [Suspect]
     Indication: ENDOMETRIAL CANCER

REACTIONS (2)
  - ANAPHYLACTIC REACTION [None]
  - RESPIRATORY ARREST [None]
